FAERS Safety Report 14603061 (Version 2)
Quarter: 2018Q2

REPORT INFORMATION
  Report Type: Report from Study
  Country: KR (occurrence: KR)
  Receive Date: 20180306
  Receipt Date: 20180531
  Transmission Date: 20180711
  Serious: Yes (Death, Hospitalization, Other)
  Sender: FDA-Public Use
  Company Number: KR-BRISTOL-MYERS SQUIBB COMPANY-BMS-2018-021079

PATIENT
  Age: 74 Year
  Sex: Female
  Weight: 45 kg

DRUGS (1)
  1. NIVOLUMAB [Suspect]
     Active Substance: NIVOLUMAB
     Indication: NON-SMALL CELL LUNG CANCER
     Dosage: 135 MG, Q2WK
     Route: 042
     Dates: start: 20180111, end: 20180124

REACTIONS (5)
  - Feeling cold [Unknown]
  - Malignant neoplasm progression [Fatal]
  - Pyrexia [Unknown]
  - Pneumonia [Unknown]
  - Abdominal pain lower [Unknown]

NARRATIVE: CASE EVENT DATE: 20180128
